FAERS Safety Report 10602610 (Version 1)
Quarter: 2014Q4

REPORT INFORMATION
  Report Type: Spontaneous
  Country: US (occurrence: US)
  Receive Date: 20141124
  Receipt Date: 20141124
  Transmission Date: 20150529
  Serious: Yes (Other)
  Sender: FDA-Public Use
  Company Number: US-TEVA-523571USA

PATIENT
  Age: 51 Year
  Sex: Female
  Weight: 88.98 kg

DRUGS (3)
  1. NUVIGIL [Suspect]
     Active Substance: ARMODAFINIL
     Indication: FATIGUE
     Route: 048
  2. METHYLPREDNISOLONE. [Concomitant]
     Active Substance: METHYLPREDNISOLONE
  3. WARFARIN [Suspect]
     Active Substance: WARFARIN
     Route: 065

REACTIONS (8)
  - Product use issue [Unknown]
  - Diarrhoea [Not Recovered/Not Resolved]
  - Vomiting projectile [Recovered/Resolved]
  - Abdominal pain upper [Not Recovered/Not Resolved]
  - Anaphylactic reaction [Recovered/Resolved]
  - Rash [Recovered/Resolved]
  - Abnormal faeces [Not Recovered/Not Resolved]
  - Abdominal discomfort [Not Recovered/Not Resolved]

NARRATIVE: CASE EVENT DATE: 200704
